FAERS Safety Report 7103250-9 (Version None)
Quarter: 2010Q4

REPORT INFORMATION
  Report Type: 
  Country: None (occurrence: None)
  Receive Date: 20101115
  Receipt Date: 20101101
  Transmission Date: 20110411
  Serious: Yes (Life-Threatening, Disabling, Other)
  Sender: FDA-Public Use
  Company Number: JP-BAYER-JP-2004-028464

PATIENT
  Age: 54 Year
  Sex: Female
  Weight: 64 kg

DRUGS (2)
  1. BETAFERON [Suspect]
     Indication: RELAPSING-REMITTING MULTIPLE SCLEROSIS
     Dosage: UNIT DOSE: 8 MIU
     Route: 058
     Dates: start: 20031101, end: 20040101
  2. BETAFERON [Suspect]
     Dosage: UNIT DOSE: 8 MIU
     Route: 058
     Dates: start: 20040301, end: 20040601

REACTIONS (7)
  - BACK PAIN [None]
  - DYSPHAGIA [None]
  - MYELITIS TRANSVERSE [None]
  - NEUROMYELITIS OPTICA [None]
  - OPTIC NEURITIS [None]
  - QUADRIPLEGIA [None]
  - RESPIRATORY FAILURE [None]
